FAERS Safety Report 18629988 (Version 7)
Quarter: 2021Q3

REPORT INFORMATION
  Report Type: Spontaneous
  Country: US (occurrence: US)
  Receive Date: 20201217
  Receipt Date: 20210720
  Transmission Date: 20211014
  Serious: Yes (Other)
  Sender: FDA-Public Use
  Company Number: US-PFIZER INC-2020499026

PATIENT
  Age: 82 Year
  Sex: Female
  Weight: 55.61 kg

DRUGS (16)
  1. VITAMIN B12 [Concomitant]
     Active Substance: CYANOCOBALAMIN
  2. LOVASTATIN. [Concomitant]
     Active Substance: LOVASTATIN
  3. DELSYM NIGHT TIME COUGH + COLD [Concomitant]
  4. CALCIUM CARBONATE. [Concomitant]
     Active Substance: CALCIUM CARBONATE
     Dosage: UNK
  5. TYLENOL ARTHRITIS PAIN [Concomitant]
     Active Substance: ACETAMINOPHEN
     Dosage: UNK
  6. AMLODIPINE BESYLATE. [Concomitant]
     Active Substance: AMLODIPINE BESYLATE
  7. IMODIUM A?D [Concomitant]
     Active Substance: LOPERAMIDE HYDROCHLORIDE
     Dosage: UNK
  8. GLUCOSAMINE CHONDROITIN [CHONDROITIN SULFATE;GLUCOSAMINE SULFATE] [Concomitant]
     Dosage: UNK
  9. XGEVA [Concomitant]
     Active Substance: DENOSUMAB
  10. EXEMESTANE. [Concomitant]
     Active Substance: EXEMESTANE
  11. LORATADINE. [Concomitant]
     Active Substance: LORATADINE
  12. IBRANCE [Suspect]
     Active Substance: PALBOCICLIB
     Indication: BREAST CANCER METASTATIC
     Dosage: 125 MG, CYCLIC(21 DAYS ON, 7 DAYS OFF)
     Route: 048
     Dates: start: 20201201, end: 20201216
  13. IBRANCE [Suspect]
     Active Substance: PALBOCICLIB
     Indication: METASTASES TO BONE
     Dosage: 100 MG, CYCLIC(1 DAILY FOR 21 DAYS)
     Route: 048
     Dates: start: 202012
  14. IBRANCE [Suspect]
     Active Substance: PALBOCICLIB
     Indication: PLEURAL EFFUSION
     Dosage: 75 MG, CYCLIC, (DAILY FOR 21 DAYS )
     Route: 048
     Dates: start: 20201201
  15. DIAZEPAM. [Concomitant]
     Active Substance: DIAZEPAM
  16. FUROSEMIDE. [Concomitant]
     Active Substance: FUROSEMIDE

REACTIONS (9)
  - White blood cell count decreased [Unknown]
  - Sinusitis [Unknown]
  - Cough [Unknown]
  - Stomatitis [Unknown]
  - Fatigue [Unknown]
  - Nausea [Unknown]
  - Feeling cold [Unknown]
  - Lethargy [Unknown]
  - Pyrexia [Unknown]

NARRATIVE: CASE EVENT DATE: 202012
